FAERS Safety Report 4883894-5 (Version None)
Quarter: 2006Q1

REPORT INFORMATION
  Report Type: 
  Country: None (occurrence: None)
  Receive Date: 20060113
  Receipt Date: 20060102
  Transmission Date: 20060701
  Serious: Yes (Hospitalization)
  Sender: FDA-Public Use
  Company Number: SEWYE271803JAN06

PATIENT
  Age: 64 Year
  Sex: Male

DRUGS (6)
  1. RAPAMUNE [Suspect]
     Indication: PROPHYLAXIS AGAINST TRANSPLANT REJECTION
     Dosage: 15 MG 1X PER 1 DAY; ORAL (SEE IMAGE)
     Route: 048
     Dates: start: 20051202, end: 20051202
  2. RAPAMUNE [Suspect]
     Indication: PROPHYLAXIS AGAINST TRANSPLANT REJECTION
     Dosage: 15 MG 1X PER 1 DAY; ORAL (SEE IMAGE)
     Route: 048
     Dates: start: 20051203, end: 20051209
  3. RAPAMUNE [Suspect]
     Indication: PROPHYLAXIS AGAINST TRANSPLANT REJECTION
     Dosage: 15 MG 1X PER 1 DAY; ORAL (SEE IMAGE)
     Route: 048
     Dates: start: 20051210, end: 20051211
  4. RAPAMUNE [Suspect]
     Indication: PROPHYLAXIS AGAINST TRANSPLANT REJECTION
     Dosage: 15 MG 1X PER 1 DAY; ORAL (SEE IMAGE)
     Route: 048
     Dates: start: 20051213, end: 20051216
  5. RAPAMUNE [Suspect]
     Indication: PROPHYLAXIS AGAINST TRANSPLANT REJECTION
     Dosage: 15 MG 1X PER 1 DAY; ORAL (SEE IMAGE)
     Route: 048
     Dates: start: 20051217, end: 20051230
  6. RAPAMUNE [Suspect]
     Indication: PROPHYLAXIS AGAINST TRANSPLANT REJECTION
     Dosage: 15 MG 1X PER 1 DAY; ORAL (SEE IMAGE)
     Route: 048
     Dates: start: 20051231

REACTIONS (8)
  - BLOOD PRESSURE ABNORMAL [None]
  - HAEMODIALYSIS [None]
  - PERITONEAL DIALYSIS [None]
  - PROCEDURAL HYPOTENSION [None]
  - RENAL FAILURE [None]
  - RENAL TUBULAR NECROSIS [None]
  - RESPIRATORY DISORDER [None]
  - SURGICAL PROCEDURE REPEATED [None]
